FAERS Safety Report 10994170 (Version 1)
Quarter: 2015Q2

REPORT INFORMATION
  Report Type: Spontaneous
  Country: GB (occurrence: GB)
  Receive Date: 20150407
  Receipt Date: 20150407
  Transmission Date: 20150821
  Serious: Yes (Other)
  Sender: FDA-Public Use
  Company Number: GB-PFIZER INC-2015113471

PATIENT
  Age: 39 Year
  Sex: Male
  Weight: 80 kg

DRUGS (5)
  1. IBUPROFEN. [Suspect]
     Active Substance: IBUPROFEN
     Dosage: UNK
  2. AMITRIPTYLINE HYDROCHLORIDE. [Concomitant]
     Active Substance: AMITRIPTYLINE HYDROCHLORIDE
     Dosage: 1 DOSAGE FORM ONCE PER DAY AT NIGHT
     Dates: start: 20150225
  3. LYMECYCLINE [Concomitant]
     Active Substance: LYMECYCLINE
     Dosage: 1 DF, 1X/DAY
     Dates: start: 20130301
  4. PREDNISOLONE. [Concomitant]
     Active Substance: PREDNISOLONE
     Dosage: 6 DF, 1X/DAY
     Dates: start: 20150219, end: 20150224
  5. NAPROXEN. [Concomitant]
     Active Substance: NAPROXEN
     Dosage: 2 DF, 2X/DAY
     Dates: start: 20150219, end: 20150319

REACTIONS (5)
  - Angioedema [Recovered/Resolved]
  - Pharyngeal oedema [Recovered/Resolved]
  - Pruritus [Recovered/Resolved]
  - Inflammation [Recovered/Resolved]
  - Rash generalised [Recovered/Resolved]

NARRATIVE: CASE EVENT DATE: 20150228
